FAERS Safety Report 9168031 (Version 2)
Quarter: 2013Q1

REPORT INFORMATION
  Report Type: Spontaneous
  Country: JP (occurrence: None)
  Receive Date: 20130307
  Receipt Date: 20130320
  Transmission Date: 20140127
  Serious: Yes (Hospitalization, Other)
  Sender: FDA-Public Use
  Company Number: VAL_01445_2013

PATIENT
  Age: 26 Year
  Sex: Female

DRUGS (1)
  1. METHYLERGOMETRINE [Suspect]
     Dosage: DF
     Route: 048

REACTIONS (8)
  - Subarachnoid haemorrhage [None]
  - Cerebral vasoconstriction [None]
  - Cerebral infarction [None]
  - Angioedema [None]
  - Headache [None]
  - Cerebral artery stenosis [None]
  - Xanthochromia [None]
  - White matter lesion [None]
